FAERS Safety Report 25875543 (Version 1)
Quarter: 2025Q4

REPORT INFORMATION
  Report Type: Spontaneous
  Country: GB (occurrence: GB)
  Receive Date: 20251003
  Receipt Date: 20251003
  Transmission Date: 20260118
  Serious: Yes (Other)
  Sender: TEVA
  Company Number: GB-MHRA-EMIS-1800-272d549a-4304-4a78-8470-107cef291502

PATIENT
  Age: 36 Year
  Sex: Male
  Weight: 118 kg

DRUGS (3)
  1. MONTELUKAST [Suspect]
     Active Substance: MONTELUKAST
     Indication: Product used for unknown indication
     Dosage: AT NIGHT
     Route: 065
     Dates: start: 20250514, end: 20250528
  2. BECLOMETHASONE\FORMOTEROL [Concomitant]
     Active Substance: BECLOMETHASONE\FORMOTEROL
     Indication: Product used for unknown indication
     Dosage: 100/6 INHALER
     Route: 065
  3. ALBUTEROL [Concomitant]
     Active Substance: ALBUTEROL
     Indication: Product used for unknown indication
     Dosage: AS REQUIRED

REACTIONS (2)
  - Depressed mood [Recovered/Resolved]
  - Nightmare [Recovered/Resolved]

NARRATIVE: CASE EVENT DATE: 20250514
